FAERS Safety Report 7124097-3 (Version None)
Quarter: 2010Q4

REPORT INFORMATION
  Report Type: 
  Country: None (occurrence: None)
  Receive Date: 20101126
  Receipt Date: 20101112
  Transmission Date: 20110411
  Serious: Yes (Other)
  Sender: FDA-Public Use
  Company Number: PHHY2009CA51564

PATIENT
  Sex: Female

DRUGS (13)
  1. EXJADE [Suspect]
     Indication: MYELODYSPLASTIC SYNDROME
     Dosage: 1750 MG, QD
     Route: 048
     Dates: start: 20091001, end: 20100701
  2. EXJADE [Suspect]
     Indication: IRON OVERLOAD
     Dosage: 4 TABLETS OF 250 MG/DAY
     Route: 048
  3. EXJADE [Suspect]
     Dosage: 1750 MG, QD
     Route: 048
     Dates: end: 20100701
  4. PREDNISONE [Concomitant]
     Dosage: 15 MG/DAY
  5. CELLCEPT [Concomitant]
  6. DRUG THERAPY NOS [Concomitant]
  7. IMURAN [Concomitant]
  8. VITAMIN D [Concomitant]
  9. RAMIPRIL [Concomitant]
  10. TACROLIMUS [Concomitant]
  11. AZATHIOPRINE [Concomitant]
  12. CARVEDILOL [Concomitant]
  13. DILTIAZEM [Concomitant]

REACTIONS (6)
  - BLOOD CREATININE INCREASED [None]
  - DIALYSIS [None]
  - DIARRHOEA [None]
  - PAIN [None]
  - RENAL IMPAIRMENT [None]
  - TRANSPLANT FAILURE [None]
